APPROVED DRUG PRODUCT: CHLORPROMAZINE HYDROCHLORIDE
Active Ingredient: CHLORPROMAZINE HYDROCHLORIDE
Strength: 30MG/ML
Dosage Form/Route: CONCENTRATE;ORAL
Application: A040231 | Product #001
Applicant: PHARMACEUTICAL ASSOC INC DIV BEACH PRODUCTS
Approved: Dec 30, 1999 | RLD: No | RS: No | Type: DISCN